FAERS Safety Report 7225882-X (Version None)
Quarter: 2011Q1

REPORT INFORMATION
  Report Type: 
  Country: None (occurrence: None)
  Receive Date: 20110113
  Receipt Date: 20110103
  Transmission Date: 20110831
  Serious: Yes (Other)
  Sender: FDA-Public Use
  Company Number: GB-GENENTECH-286841

PATIENT

DRUGS (8)
  1. IFOSFAMIDE [Suspect]
     Indication: B-CELL LYMPHOMA
     Route: 065
  2. METHOTREXATE [Suspect]
     Indication: B-CELL LYMPHOMA
     Dosage: UNK MG/M2, UNK
     Route: 065
  3. ETOPOSIDE [Suspect]
     Indication: B-CELL LYMPHOMA
     Route: 065
  4. CYTARABINE [Suspect]
     Indication: B-CELL LYMPHOMA
     Route: 065
  5. VINCRISTINE [Suspect]
     Indication: B-CELL LYMPHOMA
     Route: 065
  6. CYCLOPHOSPHAMIDE [Suspect]
     Indication: B-CELL LYMPHOMA
     Route: 065
  7. DOXORUBICIN HCL [Suspect]
     Indication: B-CELL LYMPHOMA
     Route: 065
  8. RITUXIMAB [Suspect]
     Indication: B-CELL LYMPHOMA
     Dosage: 375 MG/M2, UNK
     Route: 042

REACTIONS (10)
  - DEEP VEIN THROMBOSIS [None]
  - PULMONARY EMBOLISM [None]
  - NEUTROPENIA [None]
  - NEUTROPENIC SEPSIS [None]
  - THROMBOSIS IN DEVICE [None]
  - STOMATITIS [None]
  - SEPSIS [None]
  - THROMBOCYTOPENIA [None]
  - DIARRHOEA [None]
  - ATRIAL FIBRILLATION [None]
